FAERS Safety Report 20595330 (Version 1)
Quarter: 2022Q1

REPORT INFORMATION
  Report Type: Spontaneous
  Country: TR (occurrence: TR)
  Receive Date: 20220315
  Receipt Date: 20220315
  Transmission Date: 20220423
  Serious: Yes (Other)
  Sender: FDA-Public Use
  Company Number: TR-NOVARTISPH-NVSC2022TR058117

PATIENT
  Age: 66 Year
  Sex: Male

DRUGS (1)
  1. EXELON PATCH [Suspect]
     Active Substance: RIVASTIGMINE
     Indication: Dementia
     Dosage: 4.6 MG, QD PATCH 5 (CM2) (ONCE EVERY 24 HOURS)
     Route: 062

REACTIONS (1)
  - Myocardial infarction [Unknown]
